FAERS Safety Report 6446418-7 (Version None)
Quarter: 2009Q4

REPORT INFORMATION
  Report Type: 
  Country: None (occurrence: None)
  Receive Date: 20091119
  Receipt Date: 20091106
  Transmission Date: 20100525
  Serious: Yes (Hospitalization, Other)
  Sender: FDA-Public Use
  Company Number: PHHY2009CH48862

PATIENT
  Sex: Male

DRUGS (6)
  1. VOLTAREN [Suspect]
     Indication: PYREXIA
     Dosage: UNK
     Dates: start: 20090701
  2. DAFALGAN [Suspect]
     Indication: RENAL COLIC
     Dosage: 6 G PER DAY
     Dates: start: 20080928, end: 20081001
  3. ROCEPHIN [Suspect]
     Indication: CALCULUS URINARY
     Dosage: UNK
     Dates: start: 20090715
  4. MINALGIN [Concomitant]
     Indication: RENAL COLIC
     Dosage: 1 G, PER DAY
     Dates: start: 20090714
  5. PETHIDIN HCL [Concomitant]
     Dosage: UNK
  6. NEXIUM [Concomitant]
     Dosage: 40 MG PER DAY

REACTIONS (6)
  - ASCITES [None]
  - C-REACTIVE PROTEIN INCREASED [None]
  - COAGULOPATHY [None]
  - HEPATOCELLULAR INJURY [None]
  - LIVER FUNCTION TEST ABNORMAL [None]
  - PYREXIA [None]
